FAERS Safety Report 5876603-4 (Version None)
Quarter: 2008Q3

REPORT INFORMATION
  Report Type: 
  Country: None (occurrence: None)
  Receive Date: 20080910
  Receipt Date: 20080723
  Transmission Date: 20090109
  Serious: No
  Sender: FDA-Public Use
  Company Number: US-BAYER-200829463NA

PATIENT
  Age: 26 Year
  Sex: Female
  Weight: 86 kg

DRUGS (1)
  1. MIRENA [Suspect]
     Indication: DRUG USE FOR UNKNOWN INDICATION
     Route: 015
     Dates: start: 20080625

REACTIONS (4)
  - ABDOMINAL PAIN [None]
  - DYSPAREUNIA [None]
  - HEADACHE [None]
  - VAGINAL HAEMORRHAGE [None]
